FAERS Safety Report 4421869-0 (Version None)
Quarter: 2004Q3

REPORT INFORMATION
  Report Type: 
  Country: None (occurrence: None)
  Receive Date: 20040804
  Receipt Date: 20040723
  Transmission Date: 20050211
  Serious: Yes (Death)
  Sender: FDA-Public Use
  Company Number: US-JNJFOC-20040706477

PATIENT
  Age: 71 Year
  Sex: Female

DRUGS (4)
  1. INFLIXIMAB (INFLIXIMAB, RECOMBINANT) LYOPHILIZED POWDER [Suspect]
     Indication: RHEUMATOID ARTHRITIS
     Dosage: INTRAVENOUS
     Route: 042
     Dates: start: 20010521
  2. ARAVA [Concomitant]
  3. NAPROSYN [Concomitant]
  4. PREDNISONE [Concomitant]

REACTIONS (1)
  - MYOCARDIAL INFARCTION [None]
